FAERS Safety Report 6177210-9 (Version None)
Quarter: 2009Q2

REPORT INFORMATION
  Report Type: 
  Country: None (occurrence: None)
  Receive Date: 20090504
  Receipt Date: 20090423
  Transmission Date: 20091009
  Serious: Yes (Other)
  Sender: FDA-Public Use
  Company Number: PHHY2009GB16054

PATIENT

DRUGS (1)
  1. EXELON [Suspect]
     Dosage: 9.5 MG/24HR
     Route: 062

REACTIONS (1)
  - MENTAL IMPAIRMENT [None]
